FAERS Safety Report 17217154 (Version 1)
Quarter: 2019Q4

REPORT INFORMATION
  Report Type: Report from Study
  Country: IT (occurrence: IT)
  Receive Date: 20191231
  Receipt Date: 20191231
  Transmission Date: 20200122
  Serious: Yes (Other)
  Sender: FDA-Public Use
  Company Number: IT-TEVA-2019-IT-1159599

PATIENT
  Age: 87 Year
  Sex: Male

DRUGS (9)
  1. AMLODIPINE [Suspect]
     Active Substance: AMLODIPINE BESYLATE
     Indication: HYPERTENSION
     Dosage: 5 MG
     Route: 048
     Dates: start: 20181102, end: 20191102
  2. TRITTICO [Concomitant]
     Active Substance: TRAZODONE HYDROCHLORIDE
     Dosage: 20 GTT
  3. ESKIM [Concomitant]
     Active Substance: OMEGA-3 FATTY ACIDS
     Dosage: 2 DF
  4. CARDIOASPIRIN [Concomitant]
     Active Substance: ASPIRIN
  5. TALOFEN [Concomitant]
     Active Substance: PROMAZINE HYDROCHLORIDE
     Dosage: 10 GTT
  6. MIRCERA 30 MICROGRAMS/0.3 ML SOLUTION FOR INJECTION IN PRE-FILLED SYRI [Concomitant]
     Dosage: 1 DF
  7. SINVACOR [Concomitant]
     Active Substance: SIMVASTATIN
  8. ADENURIC [Concomitant]
     Active Substance: FEBUXOSTAT
     Dosage: 0.5 DF
  9. INTRAFER [Concomitant]
     Dosage: 30 GTT

REACTIONS (2)
  - Drug ineffective [Recovering/Resolving]
  - Hypertensive crisis [Recovering/Resolving]

NARRATIVE: CASE EVENT DATE: 20191102
